FAERS Safety Report 17646079 (Version 1)
Quarter: 2020Q2

REPORT INFORMATION
  Report Type: Spontaneous
  Country: US (occurrence: US)
  Receive Date: 20200408
  Receipt Date: 20200408
  Transmission Date: 20200713
  Serious: Yes (Hospitalization, Other)
  Sender: FDA-Public Use
  Company Number: US-009507513-2004USA002457

PATIENT
  Sex: Male

DRUGS (1)
  1. DIFICID [Suspect]
     Active Substance: FIDAXOMICIN
     Indication: GASTRIC INFECTION
     Dosage: UNK
     Route: 048

REACTIONS (2)
  - Adverse event [Not Recovered/Not Resolved]
  - Gastric infection [Not Recovered/Not Resolved]
